FAERS Safety Report 11759121 (Version 1)
Quarter: 2015Q4

REPORT INFORMATION
  Report Type: Spontaneous
  Country: US (occurrence: US)
  Receive Date: 20151120
  Receipt Date: 20151120
  Transmission Date: 20160304
  Serious: No
  Sender: FDA-Public Use
  Company Number: US-JNJFOC-20151011114

PATIENT
  Age: 35 Year
  Sex: Female
  Weight: 79.38 kg

DRUGS (2)
  1. MENS ROGAINE EXTRA STRENGTH [Suspect]
     Active Substance: MINOXIDIL
     Route: 061
  2. MENS ROGAINE EXTRA STRENGTH [Suspect]
     Active Substance: MINOXIDIL
     Indication: ALOPECIA
     Dosage: 1ML, TWICE
     Route: 061
     Dates: start: 20151009, end: 20151011

REACTIONS (4)
  - Skin ulcer [Recovered/Resolved]
  - Pain of skin [Recovered/Resolved]
  - Rash [Recovered/Resolved]
  - Skin irritation [Recovered/Resolved]

NARRATIVE: CASE EVENT DATE: 20151012
